FAERS Safety Report 4719782-4 (Version None)
Quarter: 2005Q3

REPORT INFORMATION
  Report Type: 
  Country: None (occurrence: None)
  Receive Date: 20050721
  Receipt Date: 20041028
  Transmission Date: 20060218
  Serious: No
  Sender: FDA-Public Use
  Company Number: US-GLAXOSMITHKLINE-A0531657A

PATIENT

DRUGS (2)
  1. AVANDIA [Suspect]
  2. INSULIN [Suspect]

REACTIONS (1)
  - FACE OEDEMA [None]
